FAERS Safety Report 21199304 (Version 1)
Quarter: 2022Q3

REPORT INFORMATION
  Report Type: Spontaneous
  Country: None (occurrence: US)
  Receive Date: 20220811
  Receipt Date: 20220811
  Transmission Date: 20221026
  Serious: No
  Sender: FDA-Public Use
  Company Number: US-Ajanta Pharma USA Inc.-2131713

PATIENT
  Age: 44 Year
  Sex: Female
  Weight: 136.36 kg

DRUGS (7)
  1. DULOXETINE [Suspect]
     Active Substance: DULOXETINE
     Indication: Depression
     Route: 048
     Dates: start: 20220616
  2. CENTRUM WOMEN^S MULTIVITAMIN [Concomitant]
  3. PANTOPRAZOLE SODIUM [Concomitant]
     Active Substance: PANTOPRAZOLE SODIUM
  4. SPIRONOLACTONE [Concomitant]
     Active Substance: SPIRONOLACTONE
  5. VALSARTAN [Concomitant]
     Active Substance: VALSARTAN
  6. METHIMAZOLE [Concomitant]
     Active Substance: METHIMAZOLE
  7. ALPRAZOLAM [Concomitant]
     Active Substance: ALPRAZOLAM

REACTIONS (7)
  - Mental disorder [Recovering/Resolving]
  - Crying [Recovering/Resolving]
  - Drug ineffective [Recovered/Resolved]
  - Performance status decreased [Recovering/Resolving]
  - Product substitution issue [Recovered/Resolved]
  - Feeling abnormal [Recovering/Resolving]
  - Insomnia [Not Recovered/Not Resolved]
